FAERS Safety Report 15708436 (Version 1)
Quarter: 2018Q4

REPORT INFORMATION
  Report Type: Spontaneous
  Country: US (occurrence: US)
  Receive Date: 20181128
  Receipt Date: 20181128
  Transmission Date: 20190205
  Serious: No
  Sender: FDA-Public Use
  Company Number: None

PATIENT
  Age: 53 Year
  Sex: Male

DRUGS (14)
  1. COQ10 [Concomitant]
     Active Substance: UBIDECARENONE
  2. DULOXETINE. [Concomitant]
     Active Substance: DULOXETINE
  3. FISH OIL [Concomitant]
     Active Substance: FISH OIL
  4. FLOVENT [Concomitant]
     Active Substance: FLUTICASONE PROPIONATE
  5. OXYCODONE [Concomitant]
     Active Substance: OXYCODONE
  6. FUROSEMIDE. [Concomitant]
     Active Substance: FUROSEMIDE
  7. LYRICA [Concomitant]
     Active Substance: PREGABALIN
  8. ACESULFAME [Concomitant]
     Active Substance: ACESULFAME POTASSIUM
  9. ATORVASTATIN [Concomitant]
     Active Substance: ATORVASTATIN
  10. METHYLPHENIDATE. [Concomitant]
     Active Substance: METHYLPHENIDATE
  11. VALIUM [Concomitant]
     Active Substance: DIAZEPAM
  12. ZOLPIDEM [Concomitant]
     Active Substance: ZOLPIDEM\ZOLPIDEM TARTRATE
  13. ZYTIGA [Suspect]
     Active Substance: ABIRATERONE ACETATE
     Indication: PROSTATE CANCER
     Route: 048
     Dates: start: 20170825
  14. MULTI-VITAMINS [Concomitant]

REACTIONS (1)
  - Oesophageal spasm [None]

NARRATIVE: CASE EVENT DATE: 20181029
